FAERS Safety Report 8770812 (Version 1)
Quarter: 2012Q4

REPORT INFORMATION
  Report Type: 
  Country: US (occurrence: US)
  Receive Date: 20120906
  Receipt Date: 20120906
  Transmission Date: 20130627
  Serious: Yes (Hospitalization)
  Sender: FDA-Public Use
  Company Number: US-BAYER-US-SHR-04-022054

PATIENT
  Age: 51 Year
  Sex: Female
  Weight: 92.52 kg

DRUGS (4)
  1. YASMIN [Suspect]
     Indication: MENSTRUAL CYCLE MANAGEMENT
     Dosage: 1 tab(s), 1x/day [Daily dose: 1 tab(s)] [Total dose: 106 tab(s)]
     Route: 048
     Dates: start: 20030525, end: 20030908
  2. YASMIN [Suspect]
     Indication: MENORRHAGIA
  3. CETIRIZINE HYDROCHLORIDE [Concomitant]
     Indication: SEASONAL ALLERGY
     Dosage: UNK, UNK
  4. NAPROSYN [Concomitant]
     Dosage: UNK
     Dates: start: 200306

REACTIONS (2)
  - Deep vein thrombosis [Recovered/Resolved]
  - Thrombophlebitis superficial [Recovered/Resolved]
